FAERS Safety Report 6121664-0 (Version None)
Quarter: 2009Q1

REPORT INFORMATION
  Report Type: 
  Country: None (occurrence: None)
  Receive Date: 20090313
  Receipt Date: 20090224
  Transmission Date: 20090719
  Serious: Yes (Other)
  Sender: FDA-Public Use
  Company Number: 2009SS000014

PATIENT

DRUGS (5)
  1. BOTULINUM TOXIN [Suspect]
     Indication: MUSCLE SPASTICITY
     Dosage: IM
     Route: 030
  2. BOTULINUM TOXIN [Suspect]
     Indication: OFF LABEL USE
     Dosage: IM
     Route: 030
  3. PHENOL [Suspect]
     Indication: MUSCLE SPASTICITY
  4. MIDAZOLAM HCL [Concomitant]
  5. ACETAMINOPHEN [Concomitant]

REACTIONS (2)
  - CONVULSION [None]
  - VOMITING [None]
